FAERS Safety Report 18872980 (Version 3)
Quarter: 2021Q3

REPORT INFORMATION
  Report Type: Other
  Country: US (occurrence: US)
  Receive Date: 20210210
  Receipt Date: 20210914
  Transmission Date: 20211014
  Serious: No
  Sender: FDA-Public Use
  Company Number: US-ROCHE-2767025

PATIENT
  Age: 38 Year
  Sex: Male
  Weight: 74.91 kg

DRUGS (1)
  1. OCREVUS [Suspect]
     Active Substance: OCRELIZUMAB
     Indication: RELAPSING-REMITTING MULTIPLE SCLEROSIS
     Dosage: PRESCRIPTION INFORMATION: INFUSE 300 MG IV AT DAY 1 AND DAY 15?DATE OF TREATMENT: 02/AUG/2020, 24/JU
     Route: 042
     Dates: start: 20190624

REACTIONS (7)
  - Gait inability [Not Recovered/Not Resolved]
  - COVID-19 [Not Recovered/Not Resolved]
  - Balance disorder [Not Recovered/Not Resolved]
  - Pyrexia [Not Recovered/Not Resolved]
  - Headache [Not Recovered/Not Resolved]
  - Feeling abnormal [Not Recovered/Not Resolved]
  - Muscle fatigue [Not Recovered/Not Resolved]

NARRATIVE: CASE EVENT DATE: 2021
